FAERS Safety Report 6741819-1 (Version None)
Quarter: 2010Q2

REPORT INFORMATION
  Report Type: 
  Country: None (occurrence: None)
  Receive Date: 20100526
  Receipt Date: 20100512
  Transmission Date: 20101027
  Serious: Yes (Hospitalization)
  Sender: FDA-Public Use
  Company Number: DE-ROCHE-704844

PATIENT
  Sex: Female
  Weight: 62 kg

DRUGS (3)
  1. TRASTUZUMAB [Suspect]
     Route: 042
     Dates: start: 20061201, end: 20070402
  2. VINORELBIN [Concomitant]
     Dates: end: 20070402
  3. FLUOROURACIL [Concomitant]
     Dates: end: 20070402

REACTIONS (1)
  - ENTERITIS [None]
